FAERS Safety Report 6781344-5 (Version None)
Quarter: 2010Q2

REPORT INFORMATION
  Report Type: 
  Country: None (occurrence: None)
  Receive Date: 20100621
  Receipt Date: 20100616
  Transmission Date: 20101027
  Serious: Yes (Death)
  Sender: FDA-Public Use
  Company Number: PHHY2010US39566

PATIENT
  Sex: Male
  Weight: 58.957 kg

DRUGS (1)
  1. EXJADE [Suspect]
     Dosage: 1250 MG DAILY
     Route: 048
     Dates: start: 20090407

REACTIONS (1)
  - DEATH [None]
